FAERS Safety Report 4744503-9 (Version None)
Quarter: 2005Q3

REPORT INFORMATION
  Report Type: 
  Country: None (occurrence: None)
  Receive Date: 20050809
  Receipt Date: 20050726
  Transmission Date: 20060218
  Serious: Yes (Life-Threatening, Hospitalization)
  Sender: FDA-Public Use
  Company Number: THYM-10657

PATIENT
  Age: 46 Year
  Sex: Male
  Weight: 79.8 kg

DRUGS (3)
  1. THYMOGLOBULIN [Suspect]
     Indication: RENAL TRANSPLANT
     Dosage: 80 MG QD IV
     Route: 042
     Dates: start: 20040224, end: 20040226
  2. PROGRAF [Concomitant]
  3. RAPAMUNE [Concomitant]

REACTIONS (4)
  - BLOOD CREATINE INCREASED [None]
  - DEHYDRATION [None]
  - DEPRESSION [None]
  - SUICIDAL IDEATION [None]
